FAERS Safety Report 26102450 (Version 1)
Quarter: 2025Q4

REPORT INFORMATION
  Report Type: Spontaneous
  Country: US (occurrence: US)
  Receive Date: 20251128
  Receipt Date: 20251128
  Transmission Date: 20260118
  Serious: Yes (Other)
  Sender: PFIZER
  Company Number: US-PFIZER INC-PV202500137570

PATIENT
  Age: 35 Year
  Sex: Female

DRUGS (2)
  1. ATARAX [Suspect]
     Active Substance: HYDROXYZINE HYDROCHLORIDE
     Dosage: UNK
  2. VISTARIL [Suspect]
     Active Substance: HYDROXYZINE PAMOATE
     Dosage: UNK

REACTIONS (7)
  - Mast cell activation syndrome [Unknown]
  - Flushing [Unknown]
  - Nausea [Unknown]
  - Tachycardia [Unknown]
  - Bradycardia [Unknown]
  - Feeling jittery [Unknown]
  - Agitation [Unknown]
